FAERS Safety Report 24112627 (Version 1)
Quarter: 2024Q3

REPORT INFORMATION
  Report Type: Report from Study
  Country: US (occurrence: None)
  Receive Date: 20240719
  Receipt Date: 20240719
  Transmission Date: 20241017
  Serious: Yes (Other)
  Sender: ASTRAZENECA
  Company Number: 2024A135215

PATIENT
  Age: 75 Year
  Sex: Male
  Weight: 61.2 kg

DRUGS (1)
  1. FARXIGA [Suspect]
     Active Substance: DAPAGLIFLOZIN PROPANEDIOL
     Indication: Diabetes mellitus
     Dosage: 1 TABLET
     Route: 048
     Dates: start: 20240321, end: 20240414

REACTIONS (3)
  - Genital infection male [Unknown]
  - Fungal infection [Unknown]
  - Burning sensation [Unknown]

NARRATIVE: CASE EVENT DATE: 20240407
